FAERS Safety Report 5456714-8 (Version None)
Quarter: 2007Q3

REPORT INFORMATION
  Report Type: 
  Country: None (occurrence: None)
  Receive Date: 20070918
  Receipt Date: 20070430
  Transmission Date: 20080115
  Serious: Yes (Other)
  Sender: FDA-Public Use
  Company Number: US-ASTRAZENECA-2006UW26104

PATIENT
  Age: 51 Year
  Sex: Male
  Weight: 76.5 kg

DRUGS (4)
  1. SEROQUEL [Suspect]
     Indication: SLEEP DISORDER
     Route: 048
     Dates: start: 19990101, end: 20060101
  2. SEROQUEL [Suspect]
     Indication: DEPRESSION
     Route: 048
     Dates: start: 19990101, end: 20060101
  3. SEROQUEL [Suspect]
     Indication: SCHIZOPHRENIA
     Route: 048
     Dates: start: 19990101, end: 20060101
  4. RISPERDAL [Concomitant]

REACTIONS (2)
  - PANCREATITIS [None]
  - TARDIVE DYSKINESIA [None]
